FAERS Safety Report 14250837 (Version 1)
Quarter: 2017Q4

REPORT INFORMATION
  Report Type: Spontaneous
  Country: US (occurrence: None)
  Receive Date: 20171205
  Receipt Date: 20171205
  Transmission Date: 20180321
  Serious: Yes (Life-Threatening, Disabling)
  Sender: FDA-Public Use
  Company Number: None

PATIENT
  Age: 61 Year
  Sex: Female
  Weight: 58.51 kg

DRUGS (20)
  1. COQ10 [Concomitant]
     Active Substance: UBIDECARENONE
  2. VITAMIN D3 [Concomitant]
     Active Substance: CHOLECALCIFEROL
  3. ECHINACEA [Concomitant]
     Active Substance: ECHINACEA, UNSPECIFIED
  4. NUT BUTTER [Concomitant]
  5. FLUOXETINE [Suspect]
     Active Substance: FLUOXETINE HYDROCHLORIDE
     Indication: PANIC ATTACK
     Dosage: DOSE - 1/2 TABLET?RX NUMBER 2402149-15601
     Route: 048
     Dates: start: 20170329, end: 20170515
  6. OXYGEN MASK FILLED WITH VICKS VAPOR RUB [Concomitant]
  7. NIACINAMIDE [Concomitant]
     Active Substance: NIACINAMIDE
  8. RESVERATROL [Concomitant]
     Active Substance: DIETARY SUPPLEMENT\RESVERATROL
  9. SLIPPERY ELM TEA [Concomitant]
  10. SELENIUM [Concomitant]
     Active Substance: SELENIUM
  11. IODINE. [Concomitant]
     Active Substance: IODINE
  12. VITAMIN C [Concomitant]
     Active Substance: ASCORBIC ACID
  13. HCL PLUS DIGESTIVE ENZYMES (PLUS GENTIAN) [Concomitant]
  14. MAGNESIUM GLYCINATE [Concomitant]
     Active Substance: MAGNESIUM GLYCINATE
  15. KYOLIC GARLIC [Concomitant]
     Active Substance: DIETARY SUPPLEMENT
  16. GOLDENSEAL [Concomitant]
     Active Substance: HERBALS\HOMEOPATHICS\GOLDENSEAL
  17. MARSHMELLOW ROOT [Concomitant]
  18. RIBOFLAVIN [Concomitant]
     Active Substance: RIBOFLAVIN
  19. ELECAMPANE [Concomitant]
  20. CALCIUM FROM COW, GOAT, OR UNSWEETENED COCONUT MILK [Concomitant]

REACTIONS (14)
  - Lung disorder [None]
  - Disturbance in attention [None]
  - Arthralgia [None]
  - Anxiety [None]
  - Hypertension [None]
  - Memory impairment [None]
  - Dental caries [None]
  - Abdominal pain [None]
  - Back pain [None]
  - Panic attack [None]
  - Fibromyalgia [None]
  - Cough [None]
  - Cardiac failure [None]
  - Respiratory tract irritation [None]

NARRATIVE: CASE EVENT DATE: 20170329
